FAERS Safety Report 8159193-5 (Version None)
Quarter: 2012Q1

REPORT INFORMATION
  Report Type: 
  Country: None (occurrence: None)
  Receive Date: 20120223
  Receipt Date: 20120215
  Transmission Date: 20120608
  Serious: Yes (Hospitalization)
  Sender: FDA-Public Use
  Company Number: AU-JNJFOC-20120208345

PATIENT
  Sex: Male
  Weight: 108 kg

DRUGS (5)
  1. LEXAPRO [Concomitant]
     Route: 065
  2. TOPAMAX [Suspect]
     Indication: PRODUCT USED FOR UNKNOWN INDICATION
     Route: 048
     Dates: start: 20100313
  3. INDERAL [Interacting]
     Route: 065
     Dates: start: 20091015
  4. INDERAL [Interacting]
     Indication: PRODUCT USED FOR UNKNOWN INDICATION
     Route: 065
  5. CLINDAMYCIN HCL [Concomitant]
     Route: 065
     Dates: start: 20100313, end: 20100313

REACTIONS (2)
  - DYSPNOEA [None]
  - DRUG INTERACTION [None]
